FAERS Safety Report 5906725-0 (Version None)
Quarter: 2008Q4

REPORT INFORMATION
  Report Type: 
  Country: None (occurrence: None)
  Receive Date: 20081002
  Receipt Date: 20080829
  Transmission Date: 20090506
  Serious: Yes (Hospitalization)
  Sender: FDA-Public Use
  Company Number: DE-GENENTECH-268983

PATIENT
  Sex: Male

DRUGS (2)
  1. AVASTIN [Suspect]
     Indication: RENAL CELL CARCINOMA
     Dosage: 10 MG/KG, UNK
     Route: 042
     Dates: start: 20080704
  2. INTERFERON ALFA-2A [Suspect]
     Indication: RENAL CELL CARCINOMA
     Dosage: 3 UNK, Q2D
     Route: 058
     Dates: start: 20080707

REACTIONS (1)
  - PATHOLOGICAL FRACTURE [None]
